FAERS Safety Report 6155039-5 (Version None)
Quarter: 2009Q2

REPORT INFORMATION
  Report Type: 
  Country: None (occurrence: None)
  Receive Date: 20090410
  Receipt Date: 20090402
  Transmission Date: 20091009
  Serious: Yes (Other)
  Sender: FDA-Public Use
  Company Number: 2009JP001791

PATIENT
  Age: 59 Year
  Sex: Male

DRUGS (7)
  1. PROGRAF [Suspect]
     Indication: BONE MARROW TRANSPLANT
  2. METHOTREXATE FORMULATION UNKNOWN [Concomitant]
  3. BUSULFAN (BUSULFAN) [Concomitant]
  4. FLUDARABINE PHOSPHATE [Concomitant]
  5. PREDNISOLONE [Concomitant]
  6. METHYLPREDNISOLONE 16MG TAB [Concomitant]
  7. MYCOPHENOLATE MOFETIL [Concomitant]

REACTIONS (3)
  - ASCITES [None]
  - CYTOMEGALOVIRUS INFECTION [None]
  - THROMBOTIC MICROANGIOPATHY [None]
